FAERS Safety Report 12233063 (Version 1)
Quarter: 2016Q2

REPORT INFORMATION
  Report Type: Other
  Country: IT (occurrence: IT)
  Receive Date: 20160403
  Receipt Date: 20160403
  Transmission Date: 20160815
  Serious: Yes (Other)
  Sender: FDA-Public Use
  Company Number: IT-MYLANLABS-2016M1013392

PATIENT

DRUGS (2)
  1. OXALIPLATIN. [Suspect]
     Active Substance: OXALIPLATIN
     Indication: COLON CANCER
     Dosage: 210 MG, CYCLE
     Route: 042
     Dates: start: 20151027, end: 20160311
  2. CAPECITABINE. [Concomitant]
     Active Substance: CAPECITABINE
     Indication: COLON CANCER
     Dosage: 4000 MG, UNK
     Route: 048
     Dates: start: 20151027, end: 20160311

REACTIONS (2)
  - Fibrin D dimer increased [Unknown]
  - Blood pressure decreased [Recovered/Resolved]

NARRATIVE: CASE EVENT DATE: 20160311
